FAERS Safety Report 5022512-2 (Version None)
Quarter: 2006Q2

REPORT INFORMATION
  Report Type: 
  Country: None (occurrence: None)
  Receive Date: 20060502
  Receipt Date: 20050916
  Transmission Date: 20061013
  Serious: Yes (Hospitalization, Other)
  Sender: FDA-Public Use
  Company Number: PHEH2005US10302

PATIENT
  Age: 61 Year
  Sex: Female
  Weight: 103.9 kg

DRUGS (3)
  1. LOTREL [Suspect]
     Indication: HYPERTENSION
     Dosage: 10/20 DAILY, ORAL
     Route: 048
  2. GLYBURIDE AND METFORMIN HCL [Concomitant]
  3. DIOVAN [Suspect]
     Dosage: ORAL
     Route: 048

REACTIONS (3)
  - ANGIONEUROTIC OEDEMA [None]
  - SWELLING FACE [None]
  - TRACHEAL OEDEMA [None]
